FAERS Safety Report 4335195-1 (Version None)
Quarter: 2004Q2

REPORT INFORMATION
  Report Type: 
  Country: None (occurrence: None)
  Receive Date: 20040408
  Receipt Date: 20040126
  Transmission Date: 20050107
  Serious: Yes (Disabling)
  Sender: FDA-Public Use
  Company Number: PHEH2004US01188

PATIENT
  Age: 60 Year
  Sex: Female
  Weight: 70 kg

DRUGS (1)
  1. LAMISIL [Suspect]
     Indication: NAIL TINEA
     Dosage: 250 MG/DAY ONE WEEK/MONTH
     Route: 048
     Dates: start: 20030901, end: 20031207

REACTIONS (4)
  - EYE PAIN [None]
  - RETINAL HAEMORRHAGE [None]
  - RETINAL OPERATION [None]
  - RETINAL VEIN OCCLUSION [None]
